FAERS Safety Report 8063490-1 (Version None)
Quarter: 2012Q1

REPORT INFORMATION
  Report Type: 
  Country: None (occurrence: None)
  Receive Date: 20120123
  Receipt Date: 20120118
  Transmission Date: 20120608
  Serious: Yes (Death)
  Sender: FDA-Public Use
  Company Number: PHEH2011US012097

PATIENT

DRUGS (16)
  1. SYNTHROID [Concomitant]
     Dosage: 100 UG, QD
     Route: 048
  2. CALCIUM [Concomitant]
     Dosage: 600 MG, QD
     Route: 048
     Dates: start: 20081021
  3. RECLAST [Suspect]
     Dosage: 5 MG/100ML (YEARLY), UNK
     Route: 042
     Dates: start: 20091022
  4. VITAMIN D [Concomitant]
     Dosage: UNK UKN, UNK
     Route: 048
     Dates: start: 20081021
  5. FERROUS SULFATE TAB [Concomitant]
     Dosage: UNK UKN, DAILY
     Route: 048
  6. PERSANTINE [Concomitant]
     Dosage: 75 MG, BID
     Route: 048
  7. METHOTREXATE [Concomitant]
     Dosage: 2.5 MG, 3 (THREE) ONCE WEEKLY FOR 30 DAYS
     Route: 048
     Dates: start: 20100111
  8. PLAQUENIL [Concomitant]
     Dosage: 200 MG, BID
     Route: 048
  9. NORVASC [Concomitant]
     Dosage: 10 MG, QD
     Route: 048
     Dates: start: 20081008
  10. ACIDUM FOLICUM [Concomitant]
     Dosage: 1 MG, DAILY FOR 30 DAYS
     Dates: start: 20090917
  11. RECLAST [Suspect]
     Indication: OSTEOPOROSIS
     Dosage: 5 MG/100ML (YEARLY), UNK
     Route: 042
     Dates: start: 20081021
  12. LORTAB [Concomitant]
     Dosage: 10-500MG, BID
     Route: 048
  13. MOBIC [Concomitant]
     Dosage: 7.5 MG, TWO TIMES DAILY FOR 30 DAYS
     Route: 048
     Dates: start: 20090603
  14. PROTONIX [Concomitant]
     Dosage: 40 MG, DAILY
     Route: 048
  15. FLEXERIL [Concomitant]
     Dosage: 10 MG, QD
     Route: 048
  16. LASIX [Concomitant]
     Dosage: 40 MG, QD
     Route: 048

REACTIONS (1)
  - DEATH [None]
